FAERS Safety Report 20977474 (Version 1)
Quarter: 2022Q2

REPORT INFORMATION
  Report Type: Report from Study
  Country: CA (occurrence: CA)
  Receive Date: 20220618
  Receipt Date: 20220618
  Transmission Date: 20220721
  Serious: Yes (Other)
  Sender: FDA-Public Use
  Company Number: CA-NOVPHSZ-PHHY2019CA031661

PATIENT
  Age: 77 Year
  Sex: Female

DRUGS (5)
  1. AIMOVIG [Suspect]
     Active Substance: ERENUMAB-AOOE
     Indication: Migraine
     Dosage: UNK
     Route: 065
     Dates: start: 20190224
  2. AIMOVIG [Suspect]
     Active Substance: ERENUMAB-AOOE
     Dosage: 140 MILLIGRAM
     Route: 065
  3. TOPIRAMATE [Suspect]
     Active Substance: TOPIRAMATE
     Indication: Migraine
     Dosage: UNK
     Route: 065
     Dates: start: 201702, end: 201901
  4. PREGABALIN [Suspect]
     Active Substance: PREGABALIN
     Indication: Migraine
     Dosage: UNK
     Route: 065
     Dates: start: 201705
  5. NADOLOL [Concomitant]
     Active Substance: NADOLOL
     Indication: Migraine
     Dosage: UNK
     Route: 065
     Dates: start: 201610, end: 201901

REACTIONS (7)
  - Cerebral atrophy [Unknown]
  - Drug intolerance [Unknown]
  - Device issue [Unknown]
  - Drug dose omission by device [Unknown]
  - Sinus disorder [Unknown]
  - Microangiopathy [Unknown]
  - Product use in unapproved indication [Unknown]
